FAERS Safety Report 9282345 (Version 1)
Quarter: 2013Q2

REPORT INFORMATION
  Report Type: Spontaneous
  Country: BR (occurrence: BR)
  Receive Date: 20130510
  Receipt Date: 20130510
  Transmission Date: 20140414
  Serious: Yes (Hospitalization)
  Sender: FDA-Public Use
  Company Number: BR-PFIZER INC-2013143598

PATIENT
  Age: 60 Year
  Sex: Male
  Weight: 67 kg

DRUGS (4)
  1. EFEXOR XR [Suspect]
     Indication: DEPRESSION
     Dosage: 1 CAPSULE OF STRENGTH 75MG, DAILY
     Dates: start: 2010
  2. LIPITOR [Suspect]
     Dosage: UNK
     Dates: start: 2010
  3. IODINE [Suspect]
     Dosage: UNK
  4. OLCADIL [Concomitant]
     Dosage: UNK

REACTIONS (5)
  - Thyroid disorder [Unknown]
  - Prostatic disorder [Unknown]
  - Overdose [Unknown]
  - Depressed mood [Unknown]
  - Asthenia [Unknown]
